FAERS Safety Report 11432187 (Version 4)
Quarter: 2015Q3

REPORT INFORMATION
  Report Type: Spontaneous
  Country: US (occurrence: US)
  Receive Date: 20150828
  Receipt Date: 20150910
  Transmission Date: 20151125
  Serious: Yes (Hospitalization, Other)
  Sender: FDA-Public Use
  Company Number: US-GLAXOSMITHKLINE-US2015123293

PATIENT
  Age: 46 Year
  Sex: Female

DRUGS (16)
  1. NORTRIPTYLINE [Concomitant]
     Active Substance: NORTRIPTYLINE
  2. MORPHINE SULFATE. [Concomitant]
     Active Substance: MORPHINE SULFATE
  3. LISINOPRIL. [Concomitant]
     Active Substance: LISINOPRIL
  4. ADVAIR DISKUS [Suspect]
     Active Substance: FLUTICASONE PROPIONATE\SALMETEROL XINAFOATE
     Indication: ASTHMA
     Dosage: 1 PUFF(S), BID
     Route: 055
  5. ESTRADIOL PATCH [Concomitant]
  6. NEURONTIN [Concomitant]
     Active Substance: GABAPENTIN
  7. QVAR [Concomitant]
     Active Substance: BECLOMETHASONE DIPROPIONATE
  8. XANAX [Concomitant]
     Active Substance: ALPRAZOLAM
  9. TEMAZEPAM. [Concomitant]
     Active Substance: TEMAZEPAM
  10. ADVAIR DISKUS [Suspect]
     Active Substance: FLUTICASONE PROPIONATE\SALMETEROL XINAFOATE
     Dosage: 500 UG, UNK
     Dates: start: 2000
  11. BUTALBITAL [Concomitant]
     Active Substance: BUTALBITAL
  12. VENTOLIN HFA [Suspect]
     Active Substance: ALBUTEROL SULFATE
     Dosage: 90 UG, UNK
  13. ARMOUR THYROID [Concomitant]
     Active Substance: THYROID, PORCINE\THYROID, UNSPECIFIED
  14. PROGESTERONE. [Concomitant]
     Active Substance: PROGESTERONE
  15. VENTOLIN HFA [Suspect]
     Active Substance: ALBUTEROL SULFATE
     Indication: ASTHMA
     Dosage: 2 PUFF(S), PRN
     Route: 055
  16. VENTOLIN HFA [Suspect]
     Active Substance: ALBUTEROL SULFATE
     Dosage: 2 PUFF(S), QID

REACTIONS (10)
  - Foot deformity [Unknown]
  - Migraine [Not Recovered/Not Resolved]
  - Aphonia [Unknown]
  - Foot operation [Unknown]
  - Knee operation [Unknown]
  - Neuralgia [Not Recovered/Not Resolved]
  - Ischiorectal hernia [Not Recovered/Not Resolved]
  - Malaise [Unknown]
  - Hip arthroplasty [Unknown]
  - Asthma [Recovered/Resolved]

NARRATIVE: CASE EVENT DATE: 2000
